FAERS Safety Report 8326590-4 (Version None)
Quarter: 2012Q2

REPORT INFORMATION
  Report Type: 
  Country: None (occurrence: None)
  Receive Date: 20120501
  Receipt Date: 20120423
  Transmission Date: 20120825
  Serious: Yes (Other)
  Sender: FDA-Public Use
  Company Number: BR-ABBOTT-12P-020-0928896-00

PATIENT
  Sex: Female
  Weight: 76 kg

DRUGS (3)
  1. SULFASALAZINE [Concomitant]
     Indication: ANKYLOSING SPONDYLITIS
     Route: 048
     Dates: start: 20000101
  2. HUMIRA [Suspect]
     Indication: ANKYLOSING SPONDYLITIS
     Route: 058
     Dates: start: 20090729, end: 20120314
  3. MELOXICAM + PARACETAMOL + PREDNISONE + FAMOTIDINE (COMBINED FORMULA) [Concomitant]
     Indication: PAIN
     Dosage: 15 MG + 500 MG + 5 MG + 20 MG
     Route: 048
     Dates: start: 20000101

REACTIONS (5)
  - DEVICE MATERIAL ISSUE [None]
  - PARAESTHESIA [None]
  - MUSCULOSKELETAL PAIN [None]
  - TOOTHACHE [None]
  - ARTHRALGIA [None]
